FAERS Safety Report 18275523 (Version 1)
Quarter: 2020Q3

REPORT INFORMATION
  Report Type: Spontaneous
  Country: TW (occurrence: TW)
  Receive Date: 20200916
  Receipt Date: 20200916
  Transmission Date: 20201103
  Serious: Yes (Other)
  Sender: FDA-Public Use
  Company Number: TW-BAXTER HEALTHCARE-2090816

PATIENT

DRUGS (3)
  1. TISSEEL FIBRIN SEALANT [Suspect]
     Active Substance: FIBRINOGEN HUMAN\THROMBIN HUMAN
     Indication: TISSUE SEALING
     Route: 065
     Dates: start: 20200722
  2. TISSEEL [Suspect]
     Active Substance: FIBRINOGEN HUMAN\THROMBIN HUMAN
  3. HEMOPATCH, PRODUCT CODE 1505182 [DEVICE] [Suspect]
     Active Substance: DEVICE
     Dates: start: 20200722

REACTIONS (4)
  - Excessive granulation tissue [Unknown]
  - Inflammation [Unknown]
  - Intestinal obstruction [Unknown]
  - Postoperative adhesion [Unknown]

NARRATIVE: CASE EVENT DATE: 20200813
